FAERS Safety Report 12366317 (Version 1)
Quarter: 2016Q2

REPORT INFORMATION
  Report Type: Spontaneous
  Country: GB (occurrence: GB)
  Receive Date: 20160513
  Receipt Date: 20160513
  Transmission Date: 20160815
  Serious: Yes (Hospitalization, Disabling)
  Sender: FDA-Public Use
  Company Number: PHFR2016GB003923

PATIENT
  Age: 75 Year
  Sex: Female

DRUGS (6)
  1. DIGOXIN. [Concomitant]
     Active Substance: DIGOXIN
     Indication: ATRIAL FIBRILLATION
     Dosage: 125 UG, QD
     Route: 048
  2. IRBESARTAN. [Concomitant]
     Active Substance: IRBESARTAN
     Indication: HYPERTENSION
     Dosage: 150 MG, QD
     Route: 048
  3. IMATINIB [Suspect]
     Active Substance: IMATINIB
     Indication: SYSTEMIC SCLEROSIS
     Dosage: 400 MG, QD
     Route: 048
     Dates: end: 20160423
  4. IMATINIB [Suspect]
     Active Substance: IMATINIB
     Indication: CHRONIC MYELOID LEUKAEMIA
  5. INDAPAMIDE. [Concomitant]
     Active Substance: INDAPAMIDE
     Indication: HYPERTENSION
     Dosage: 2.5 MG, QD
     Route: 048
  6. WARFARIN [Concomitant]
     Active Substance: WARFARIN
     Indication: ATRIAL FIBRILLATION
     Dosage: 1 MG, UNK
     Route: 048

REACTIONS (5)
  - Acute kidney injury [Not Recovered/Not Resolved]
  - Rash papular [Not Recovered/Not Resolved]
  - Erythema [Not Recovered/Not Resolved]
  - Urate nephropathy [Unknown]
  - Tubulointerstitial nephritis [Unknown]

NARRATIVE: CASE EVENT DATE: 20160331
